FAERS Safety Report 6051123-5 (Version None)
Quarter: 2009Q1

REPORT INFORMATION
  Report Type: 
  Country: None (occurrence: None)
  Receive Date: 20090126
  Receipt Date: 20010424
  Transmission Date: 20090719
  Serious: No
  Sender: FDA-Public Use
  Company Number: US-ABBOTT-08P-163-0448536-00

PATIENT

DRUGS (1)
  1. TRICOR [Suspect]
     Indication: DRUG USE FOR UNKNOWN INDICATION
     Dates: start: 20010101

REACTIONS (2)
  - BLOOD HOMOCYSTEINE INCREASED [None]
  - LOW DENSITY LIPOPROTEIN INCREASED [None]
